FAERS Safety Report 12975272 (Version 1)
Quarter: 2016Q4

REPORT INFORMATION
  Report Type: Spontaneous
  Country: MX (occurrence: MX)
  Receive Date: 20161125
  Receipt Date: 20161125
  Transmission Date: 20170207
  Serious: Yes (Death)
  Sender: FDA-Public Use
  Company Number: MX-B.I. PHARMACEUTICALS,INC./RIDGEFIELD-2016-BI-080943

PATIENT
  Age: 4 Year
  Sex: Male
  Weight: 15 kg

DRUGS (14)
  1. CEFTRIAXONA [Concomitant]
     Active Substance: CEFTRIAXONE
     Indication: PYREXIA
     Route: 042
     Dates: start: 20160302, end: 20160429
  2. VORICONAZOL [Concomitant]
     Active Substance: VORICONAZOLE
     Indication: PYREXIA
     Route: 048
     Dates: start: 20160304, end: 20161022
  3. VANCOMICINA [Concomitant]
     Active Substance: VANCOMYCIN
     Indication: PYREXIA
     Route: 042
     Dates: start: 20160429, end: 20161022
  4. LINEZOLID. [Concomitant]
     Active Substance: LINEZOLID
     Indication: PYREXIA
     Route: 042
     Dates: start: 20160707, end: 20161022
  5. PIRAZINAMIDA [Concomitant]
     Active Substance: PYRAZINAMIDE
     Indication: TUBERCULOSIS
     Route: 048
     Dates: start: 20160328, end: 20161022
  6. DICLOXACILINA [Concomitant]
     Indication: PYREXIA
     Route: 042
     Dates: start: 20160302, end: 20160429
  7. MEROPENEM. [Concomitant]
     Active Substance: MEROPENEM
     Indication: PYREXIA
     Route: 042
     Dates: start: 20160429, end: 20161022
  8. TRIMETROPRIM [Concomitant]
     Indication: PYREXIA
     Route: 042
     Dates: start: 20160704, end: 20161022
  9. IMUKIN [Suspect]
     Active Substance: INTERFERON GAMMA
     Indication: CHRONIC GRANULOMATOUS DISEASE
     Dosage: STRENGTH: 100MCG/0.5ML
     Route: 058
     Dates: start: 20130430, end: 20161022
  10. LEVOFLOXACINO [Concomitant]
     Active Substance: LEVOFLOXACIN
     Indication: TUBERCULOSIS
     Route: 048
     Dates: start: 20160502, end: 20161022
  11. COLISTINA [Concomitant]
     Active Substance: COLISTIMETHATE SODIUM
     Indication: PYREXIA
     Route: 042
     Dates: start: 20160725, end: 20161022
  12. ISONIACIDA [Concomitant]
     Indication: TUBERCULOSIS
     Route: 042
     Dates: start: 20160328, end: 20161022
  13. ETHAMBUTOL [Concomitant]
     Active Substance: ETHAMBUTOL HYDROCHLORIDE
     Indication: TUBERCULOSIS
     Route: 048
     Dates: start: 20160328, end: 20161022
  14. CASPOFUNGINA [Concomitant]
     Indication: PYREXIA
     Route: 042
     Dates: start: 20160414, end: 20161022

REACTIONS (2)
  - Histiocytosis haematophagic [Fatal]
  - Pyrexia [Fatal]

NARRATIVE: CASE EVENT DATE: 20160215
